FAERS Safety Report 9191050 (Version 1)
Quarter: 2013Q1

REPORT INFORMATION
  Report Type: Spontaneous
  Country: US (occurrence: US)
  Receive Date: 20130326
  Receipt Date: 20130326
  Transmission Date: 20140127
  Serious: No
  Sender: FDA-Public Use
  Company Number: US-PFIZER INC-2013093609

PATIENT
  Sex: Male

DRUGS (1)
  1. INLYTA [Suspect]
     Indication: MALIGNANT URINARY TRACT NEOPLASM
     Dosage: 3 MG, 2X/DAY
     Route: 048
     Dates: start: 201204, end: 201303

REACTIONS (8)
  - Fatigue [Unknown]
  - Rash [Unknown]
  - Pruritus [Unknown]
  - Upper respiratory tract congestion [Unknown]
  - Nasal dryness [Unknown]
  - Epistaxis [Unknown]
  - Disease progression [Unknown]
  - Malignant urinary tract neoplasm [Unknown]
